FAERS Safety Report 4347854-5 (Version None)
Quarter: 2004Q2

REPORT INFORMATION
  Report Type: 
  Country: None (occurrence: None)
  Receive Date: 20040422
  Receipt Date: 20040413
  Transmission Date: 20050107
  Serious: Yes (Death)
  Sender: FDA-Public Use
  Company Number: BIVUS040018

PATIENT
  Age: 73 Year
  Sex: Male

DRUGS (6)
  1. ANGIOMAX [Suspect]
     Indication: THROMBOSIS PROPHYLAXIS
     Dosage: SEE IMAGE
     Dates: start: 20040101, end: 20040101
  2. ANGIOMAX [Suspect]
     Indication: THROMBOSIS PROPHYLAXIS
     Dosage: SEE IMAGE
     Dates: start: 20040101, end: 20040101
  3. ANGIOMAX [Suspect]
     Indication: THROMBOSIS PROPHYLAXIS
     Dosage: SEE IMAGE
     Dates: start: 20040101, end: 20040101
  4. ANGIOMAX [Suspect]
     Indication: THROMBOSIS PROPHYLAXIS
     Dosage: SEE IMAGE
     Dates: start: 20040101, end: 20040101
  5. ANGIOMAX [Suspect]
     Indication: THROMBOSIS PROPHYLAXIS
     Dosage: SEE IMAGE
     Dates: start: 20040101, end: 20040101
  6. APROTININ (APROTININ) [Concomitant]

REACTIONS (7)
  - BLOOD FIBRINOGEN DECREASED [None]
  - COMA [None]
  - FIBRIN D DIMER INCREASED [None]
  - HAEMORRHAGE INTRACRANIAL [None]
  - INTERNATIONAL NORMALISED RATIO INCREASED [None]
  - OPERATIVE HAEMORRHAGE [None]
  - PUPIL FIXED [None]
